FAERS Safety Report 9683475 (Version 2)
Quarter: 2013Q4

REPORT INFORMATION
  Report Type: Spontaneous
  Country: US (occurrence: US)
  Receive Date: 20131112
  Receipt Date: 20131112
  Transmission Date: 20140711
  Serious: Yes (Other)
  Sender: FDA-Public Use
  Company Number: US-SA-2013SA104235

PATIENT
  Sex: Male

DRUGS (2)
  1. LANTUS [Suspect]
     Indication: TYPE 2 DIABETES MELLITUS
     Dosage: DOSE:12 UNIT(S)
     Route: 051
  2. HUMALOG [Suspect]
     Dosage: DOSE:3 UNIT(S)
     Route: 065

REACTIONS (6)
  - Malignant hypertension [Recovered/Resolved]
  - Headache [Unknown]
  - Dawn phenomenon [Unknown]
  - Drug ineffective [Unknown]
  - Blood glucose increased [Recovered/Resolved]
  - Generalised oedema [Unknown]
